FAERS Safety Report 6840162-X (Version None)
Quarter: 2010Q3

REPORT INFORMATION
  Report Type: 
  Country: None (occurrence: None)
  Receive Date: 20100713
  Receipt Date: 20100713
  Transmission Date: 20110219
  Serious: Yes (Disabling)
  Sender: FDA-Public Use
  Company Number: None

PATIENT
  Age: 73 Year
  Sex: Female
  Weight: 102.0593 kg

DRUGS (2)
  1. CIPRO [Suspect]
     Indication: CYSTITIS
     Dosage: PO
     Route: 048
     Dates: start: 20030101
  2. LEVAQUIN [Suspect]
     Indication: KLEBSIELLA INFECTION
     Dosage: PO
     Route: 048
     Dates: start: 20100501

REACTIONS (3)
  - INFLAMMATION [None]
  - ROTATOR CUFF SYNDROME [None]
  - TENDON PAIN [None]
